FAERS Safety Report 4338870-8 (Version None)
Quarter: 2004Q1

REPORT INFORMATION
  Report Type: 
  Country: None (occurrence: None)
  Receive Date: 20040329
  Receipt Date: 20040205
  Transmission Date: 20041129
  Serious: No
  Sender: FDA-Public Use
  Company Number: 04P-163-0249618-00

PATIENT
  Age: 48 Year
  Sex: Male

DRUGS (6)
  1. HUMIRA [Suspect]
     Indication: RHEUMATOID ARTHRITIS
     Dosage: 40 MG, 1 IN 1 WK, SUBCUTANEOUS
     Route: 058
     Dates: start: 20031113, end: 20040205
  2. METHOTREXATE [Concomitant]
  3. ARTHROTEC [Concomitant]
  4. PREDNISONE [Concomitant]
  5. FOLIC ACID [Concomitant]
  6. ATENOLOL [Concomitant]

REACTIONS (7)
  - CHILLS [None]
  - FATIGUE [None]
  - HEPATITIS INFECTIOUS [None]
  - LYMPHADENOPATHY [None]
  - NIGHT SWEATS [None]
  - PYREXIA [None]
  - RHEUMATOID ARTHRITIS [None]
